FAERS Safety Report 20197525 (Version 1)
Quarter: 2021Q4

REPORT INFORMATION
  Report Type: Spontaneous
  Country: US (occurrence: US)
  Receive Date: 20211217
  Receipt Date: 20211217
  Transmission Date: 20220303
  Serious: No
  Sender: FDA-Public Use
  Company Number: US-ORG100016242-2021000466

PATIENT
  Age: 48 Year
  Sex: Female

DRUGS (3)
  1. EXPAREL [Suspect]
     Active Substance: BUPIVACAINE
     Dosage: ONE INJECTION OF 20 ML OF EXPAREL MIXED WITH 10 ML OF NORMAL SALINE
     Route: 065
     Dates: start: 20210901, end: 20210901
  2. SODIUM CHLORIDE [Concomitant]
     Active Substance: SODIUM CHLORIDE
     Dosage: 10 ML OF NORMAL SALINE MIXED WITH 20 ML EXPAREL
     Route: 065
  3. SYNTHROID [Concomitant]
     Active Substance: LEVOTHYROXINE SODIUM
     Dosage: NOT PROVIDED
     Route: 065

REACTIONS (6)
  - Eyelid ptosis [Recovered/Resolved]
  - Taste disorder [Recovered/Resolved]
  - Vision blurred [Recovering/Resolving]
  - Nausea [Recovered/Resolved]
  - Headache [Recovered/Resolved]
  - Dry mouth [Recovered/Resolved]

NARRATIVE: CASE EVENT DATE: 20210901
